FAERS Safety Report 15904086 (Version 2)
Quarter: 2019Q3

REPORT INFORMATION
  Report Type: Spontaneous
  Country: FR (occurrence: FR)
  Receive Date: 20190204
  Receipt Date: 20190823
  Transmission Date: 20191004
  Serious: Yes (Hospitalization)
  Sender: FDA-Public Use
  Company Number: FR-JNJFOC-20190125265

PATIENT
  Age: 45 Year
  Sex: Female
  Weight: 59 kg

DRUGS (8)
  1. PARACETAMOL / CHLORPHENAMINE MALEATE / ASCORBIC ACID [Suspect]
     Active Substance: ACETAMINOPHEN\ASCORBIC ACID\CHLORPHENIRAMINE MALEATE
     Indication: INFLUENZA LIKE ILLNESS
     Route: 048
     Dates: start: 20181208, end: 20181209
  2. CETIRIZINE HYDROCHLORIDE. [Suspect]
     Active Substance: CETIRIZINE HYDROCHLORIDE
     Indication: INFLUENZA LIKE ILLNESS
     Route: 048
     Dates: start: 20181208, end: 20181209
  3. OROKEN [Suspect]
     Active Substance: CEFIXIME
     Indication: INFLUENZA LIKE ILLNESS
     Route: 048
     Dates: start: 20181211, end: 20181218
  4. SOLUPRED                           /00016217/ [Concomitant]
     Active Substance: PREDNISOLONE SODIUM METAZOATE
     Indication: INFLUENZA LIKE ILLNESS
     Route: 048
     Dates: start: 20181211, end: 20181218
  5. PARACETAMOL/DIPHENHYDRAMINE HCL/PSEUDOEPHEDRINE HCL [Suspect]
     Active Substance: ACETAMINOPHEN\DIPHENHYDRAMINE\PSEUDOEPHEDRINE
     Indication: INFLUENZA LIKE ILLNESS
     Route: 048
     Dates: start: 20181208, end: 20181209
  6. CETIRIZINE HYDROCHLORIDE/PSEUDOEPHEDRINE HYDROCHLORIDE [Suspect]
     Active Substance: CETIRIZINE HYDROCHLORIDE\PSEUDOEPHEDRINE HYDROCHLORIDE
     Indication: INFLUENZA LIKE ILLNESS
     Route: 048
     Dates: start: 20181208, end: 20181209
  7. PARACETAMOL/PSEUDOEPHEDRINE HCL/TRIPROLIDINE HCL [Suspect]
     Active Substance: ACETAMINOPHEN\PSEUDOEPHEDRINE HYDROCHLORIDE\TRIPROLIDINE
     Indication: INFLUENZA LIKE ILLNESS
     Route: 048
     Dates: start: 20181208, end: 20181209
  8. PARACETAMOL / CHLORPHENAMINE MALEATE / ASCORBIC ACID [Suspect]
     Active Substance: ACETAMINOPHEN\ASCORBIC ACID\CHLORPHENIRAMINE MALEATE
     Indication: INFLUENZA LIKE ILLNESS
     Route: 048
     Dates: start: 20181208, end: 20181209

REACTIONS (2)
  - Acute generalised exanthematous pustulosis [Recovered/Resolved]
  - Drug reaction with eosinophilia and systemic symptoms [Recovered/Resolved]

NARRATIVE: CASE EVENT DATE: 20181213
